FAERS Safety Report 8758567 (Version 1)
Quarter: 2012Q4

REPORT INFORMATION
  Report Type: 
  Country: US (occurrence: US)
  Receive Date: 20120829
  Receipt Date: 20120829
  Transmission Date: 20130627
  Serious: No
  Sender: FDA-Public Use
  Company Number: US-GLAXOSMITHKLINE-A0969825A

PATIENT
  Age: 73 Year
  Sex: Female
  Weight: 52.7 kg

DRUGS (3)
  1. ACYCLOVIR [Suspect]
     Indication: ORAL HERPES
     Route: 061
  2. ABREVA [Suspect]
     Indication: ORAL HERPES
     Route: 061
  3. ZOSTAVAX [Concomitant]
     Indication: PRODUCT USED FOR UNKNOWN INDICATION
     Route: 065
     Dates: start: 20110816

REACTIONS (2)
  - Drug ineffective [Unknown]
  - Drug administration error [Unknown]
